FAERS Safety Report 4868162-X (Version None)
Quarter: 2005Q4

REPORT INFORMATION
  Report Type: 
  Country: None (occurrence: None)
  Receive Date: 20051223
  Receipt Date: 20051219
  Transmission Date: 20060501
  Serious: Yes (Death)
  Sender: FDA-Public Use
  Company Number: 2005S1011587

PATIENT
  Age: 51 Year
  Sex: Male

DRUGS (10)
  1. CLOZAPINE [Suspect]
     Dosage: 25 MG; QD; ORAL
     Route: 048
     Dates: start: 20031210, end: 20051116
  2. CLOZAPINE [Suspect]
     Dosage: 800 MG; QD; ORAL
     Route: 048
     Dates: start: 20031210, end: 20051116
  3. METOPROLOL SUCCINATE [Concomitant]
  4. CARBAMAZEPINE [Concomitant]
  5. BENZTROPINE MESYLATE [Concomitant]
  6. CLONAZEPAM [Concomitant]
  7. OLANZAPINE [Concomitant]
  8. FENOFIBRATE [Concomitant]
  9. RANITIDINE HYDROCHLORIDE [Concomitant]
  10. ROSUVASTATIN [Concomitant]

REACTIONS (1)
  - LUNG NEOPLASM MALIGNANT [None]
